FAERS Safety Report 23746618 (Version 2)
Quarter: 2024Q2

REPORT INFORMATION
  Report Type: Spontaneous
  Country: US (occurrence: None)
  Receive Date: 20240416
  Receipt Date: 20240527
  Transmission Date: 20240715
  Serious: Yes (Other)
  Sender: FDA-Public Use
  Company Number: US-ROCHE-3474684

PATIENT
  Age: 10 Month
  Sex: Male
  Weight: 10.8 kg

DRUGS (6)
  1. HEMLIBRA [Suspect]
     Active Substance: EMICIZUMAB-KXWH
     Indication: Factor VIII deficiency
     Dosage: UNKNOWN
     Route: 058
     Dates: start: 20231208
  2. ADVATE [Concomitant]
     Active Substance: ANTIHEMOPHILIC FACTOR, HUMAN RECOMBINANT
     Indication: Haemorrhage
     Dosage: RECEIVES AT RANDOM, JUST WHEN HE RECEIVES A BLEED. ;ONGOING: YES
     Route: 042
     Dates: start: 20231119
  3. ALBUTEROL [Concomitant]
     Active Substance: ALBUTEROL
  4. AMINOCAPROIC ACID [Concomitant]
     Active Substance: AMINOCAPROIC ACID
     Route: 048
  5. EPIPEN [Concomitant]
     Active Substance: EPINEPHRINE
     Route: 030
  6. MUPIROCIN [Concomitant]
     Active Substance: MUPIROCIN
     Route: 061

REACTIONS (2)
  - Anaphylactic reaction [Recovered/Resolved]
  - Hypersensitivity [Recovered/Resolved]

NARRATIVE: CASE EVENT DATE: 20231208
